FAERS Safety Report 8915627 (Version 1)
Quarter: 2012Q4

REPORT INFORMATION
  Report Type: 
  Country: US (occurrence: US)
  Receive Date: 20121119
  Receipt Date: 20121119
  Transmission Date: 20130627
  Serious: Yes (Other)
  Sender: FDA-Public Use
  Company Number: US-JNJFOC-20121106734

PATIENT
  Sex: Female

DRUGS (3)
  1. EVICEL [Suspect]
     Indication: TISSUE ADHESION PROPHYLAXIS
     Route: 061
  2. EVICEL [Suspect]
     Indication: HAEMOSTASIS
     Route: 061
  3. UNSPECIFIED INGREDIENT [Suspect]
     Indication: TISSUE ADHESION PROPHYLAXIS
     Route: 065

REACTIONS (2)
  - Pelvic adhesions [Recovered/Resolved]
  - Cyst [None]
